FAERS Safety Report 7312891-5 (Version None)
Quarter: 2011Q1

REPORT INFORMATION
  Report Type: 
  Country: None (occurrence: None)
  Receive Date: 20110224
  Receipt Date: 20110210
  Transmission Date: 20110831
  Serious: Yes (Other)
  Sender: FDA-Public Use
  Company Number: US-ROCHE-736004

PATIENT
  Sex: Female
  Weight: 88.5 kg

DRUGS (2)
  1. ACCUTANE [Suspect]
     Indication: HIDRADENITIS
     Route: 065
     Dates: start: 19900101
  2. ACCUTANE [Suspect]
     Route: 065
     Dates: start: 19910101, end: 19910401

REACTIONS (9)
  - DIVERTICULUM INTESTINAL [None]
  - COLITIS ULCERATIVE [None]
  - GASTROINTESTINAL INJURY [None]
  - COLONIC POLYP [None]
  - IRRITABLE BOWEL SYNDROME [None]
  - CHOLELITHIASIS [None]
  - GASTROINTESTINAL DISORDER [None]
  - DEPRESSION [None]
  - HAEMORRHOIDS [None]
